FAERS Safety Report 5407527-4 (Version None)
Quarter: 2007Q3

REPORT INFORMATION
  Report Type: 
  Country: None (occurrence: None)
  Receive Date: 20070807
  Receipt Date: 20070731
  Transmission Date: 20080115
  Serious: Yes (Disabling, Other)
  Sender: FDA-Public Use
  Company Number: US-PFIZER INC-2007039838

PATIENT
  Sex: Female
  Weight: 72.1 kg

DRUGS (20)
  1. NEURONTIN [Suspect]
     Indication: DIABETIC NEUROPATHY
  2. LYRICA [Suspect]
     Indication: DIABETIC NEUROPATHY
     Dates: start: 20060101, end: 20070101
  3. FUROSEMIDE [Concomitant]
  4. ZETIA [Concomitant]
  5. ENALAPRIL MALEATE [Concomitant]
  6. LASIX [Concomitant]
  7. NORVASC [Concomitant]
  8. WARFARIN SODIUM [Concomitant]
  9. LIPITOR [Concomitant]
  10. COLCHICINE [Concomitant]
  11. PEPCID [Concomitant]
  12. ULTRAM [Concomitant]
  13. NITRGLYCERIN TRANSDERMAL SYSTEM [Concomitant]
  14. MULTIVITAMIN [Concomitant]
  15. VITAMIN B6 [Concomitant]
  16. VITAMIN B-12 [Concomitant]
  17. FOLIC ACID [Concomitant]
  18. ACIDOPHILUS [Concomitant]
  19. CENTRUM SILVER [Concomitant]
  20. ALL OTHER THERAPEUTIC PRODUCTS [Concomitant]

REACTIONS (6)
  - ACTIVITIES OF DAILY LIVING IMPAIRED [None]
  - DIZZINESS [None]
  - DRUG INEFFECTIVE [None]
  - HYPOAESTHESIA [None]
  - MENTAL IMPAIRMENT [None]
  - SOMNOLENCE [None]
